FAERS Safety Report 23161476 (Version 1)
Quarter: 2023Q4

REPORT INFORMATION
  Report Type: Spontaneous
  Country: US (occurrence: US)
  Receive Date: 20231108
  Receipt Date: 20231108
  Transmission Date: 20240110
  Serious: No
  Sender: FDA-Public Use
  Company Number: US-drreddys-LIT/USA/23/0180126

PATIENT
  Age: 58 Year
  Sex: Male

DRUGS (2)
  1. PRIMIDONE [Suspect]
     Active Substance: PRIMIDONE
     Indication: Holmes tremor
  2. CARBIDOPA AND LEVODOPA [Suspect]
     Active Substance: CARBIDOPA\LEVODOPA
     Indication: Holmes tremor

REACTIONS (3)
  - Therapy partial responder [Unknown]
  - Drug intolerance [Unknown]
  - Off label use [Unknown]
